FAERS Safety Report 9224595 (Version 1)
Quarter: 2013Q2

REPORT INFORMATION
  Report Type: Spontaneous
  Country: US (occurrence: None)
  Receive Date: 20130411
  Receipt Date: 20130411
  Transmission Date: 20140414
  Serious: Yes (Hospitalization)
  Sender: FDA-Public Use
  Company Number: None

PATIENT
  Age: 82 Year
  Sex: Male
  Weight: 85.2 kg

DRUGS (11)
  1. WARFARIN [Suspect]
     Indication: MITRAL VALVE REPAIR
     Route: 048
  2. WARFARIN [Suspect]
     Indication: AORTIC VALVE REPAIR
     Route: 048
  3. ASPIRIN [Suspect]
     Indication: MITRAL VALVE REPAIR
     Dosage: 81 MG X2
     Route: 048
  4. ASPIRIN [Suspect]
     Indication: AORTIC VALVE REPAIR
     Dosage: 81 MG X2
     Route: 048
  5. CALCIUM CARB [Concomitant]
  6. MVI [Concomitant]
  7. VIT D [Concomitant]
  8. CARVEDILOL [Concomitant]
  9. UBIQUINONE [Concomitant]
  10. SIMVASTATIN [Concomitant]
  11. OMEGA-3 [Concomitant]

REACTIONS (3)
  - Upper gastrointestinal haemorrhage [None]
  - Gastritis [None]
  - Gastric ulcer [None]
